FAERS Safety Report 25421772 (Version 2)
Quarter: 2025Q2

REPORT INFORMATION
  Report Type: Spontaneous
  Country: US (occurrence: US)
  Receive Date: 20250611
  Receipt Date: 20250620
  Transmission Date: 20250716
  Serious: No
  Sender: ROCHE
  Company Number: US-ROCHE-10000305307

PATIENT
  Sex: Female

DRUGS (1)
  1. XOLAIR [Suspect]
     Active Substance: OMALIZUMAB
     Indication: Asthma
     Dosage: XOLAIR PEN 300MG 2ML
     Route: 058

REACTIONS (4)
  - Needle issue [Unknown]
  - Incorrect dose administered [Unknown]
  - No adverse event [Unknown]
  - Device issue [Unknown]
